FAERS Safety Report 4313777-0 (Version None)
Quarter: 2004Q1

REPORT INFORMATION
  Report Type: 
  Country: None (occurrence: None)
  Receive Date: 20040305
  Receipt Date: 20040224
  Transmission Date: 20041129
  Serious: Yes (Death)
  Sender: FDA-Public Use
  Company Number: 2004UW01772

PATIENT
  Age: 43 Year
  Sex: Male

DRUGS (4)
  1. SEROQUEL [Suspect]
     Indication: AFFECTIVE DISORDER
     Dosage: 600 MG HS PO
     Route: 048
     Dates: start: 20020515, end: 20040101
  2. SEROQUEL [Suspect]
     Indication: SOMNOLENCE
     Dosage: 600 MG HS PO
     Route: 048
     Dates: start: 20020515, end: 20040101
  3. CELEXA [Concomitant]
  4. RESTORIL [Concomitant]

REACTIONS (2)
  - COMPLETED SUICIDE [None]
  - MULTIPLE DRUG OVERDOSE [None]
